FAERS Safety Report 19713434 (Version 1)
Quarter: 2021Q3

REPORT INFORMATION
  Report Type: Report from Study
  Country: CH (occurrence: CH)
  Receive Date: 20210817
  Receipt Date: 20210817
  Transmission Date: 20211014
  Serious: No
  Sender: FDA-Public Use
  Company Number: CH-JAZZ-2021-CH-006586

PATIENT

DRUGS (2)
  1. XYREM [Suspect]
     Active Substance: SODIUM OXYBATE
     Indication: SOMNOLENCE
     Dosage: FIRST DOSE OF SODIUM OXYBATE (TITRATED DOSE BETWEEN 3.0 AND 9.0 G PER NIGHT)
     Route: 065
  2. XYREM [Suspect]
     Active Substance: SODIUM OXYBATE
     Indication: SLEEP DISORDER
     Dosage: FINAL DOSE OF MEAN MEDICATION WAS 4.8 G (1.5 G)
     Route: 065

REACTIONS (2)
  - Off label use [Unknown]
  - Periodic limb movement disorder [Unknown]
